FAERS Safety Report 8337114-X (Version None)
Quarter: 2012Q2

REPORT INFORMATION
  Report Type: 
  Country: None (occurrence: None)
  Receive Date: 20120504
  Receipt Date: 20120430
  Transmission Date: 20120825
  Serious: Yes (Death)
  Sender: FDA-Public Use
  Company Number: PHEH2012US007920

PATIENT
  Sex: Male
  Weight: 63.6 kg

DRUGS (1)
  1. TASIGNA [Suspect]
     Indication: CHRONIC MYELOID LEUKAEMIA
     Dosage: 150 MG, BID
     Route: 048
     Dates: start: 20111007

REACTIONS (3)
  - DYSPNOEA [None]
  - CHEST PAIN [None]
  - ACUTE MYOCARDIAL INFARCTION [None]
